FAERS Safety Report 8246883-9 (Version None)
Quarter: 2012Q1

REPORT INFORMATION
  Report Type: 
  Country: None (occurrence: None)
  Receive Date: 20120330
  Receipt Date: 20120329
  Transmission Date: 20120608
  Serious: Yes (Death, Hospitalization)
  Sender: FDA-Public Use
  Company Number: CA-B.I. PHARMACEUTICALS,INC./RIDGEFIELD-2012-CN-00666CN

PATIENT
  Age: 86 Year
  Sex: Male

DRUGS (2)
  1. COUMADIN [Concomitant]
  2. PRADAXA [Suspect]

REACTIONS (1)
  - HAEMORRHAGE [None]
